FAERS Safety Report 4828289-5 (Version None)
Quarter: 2005Q4

REPORT INFORMATION
  Report Type: 
  Country: None (occurrence: None)
  Receive Date: 20051114
  Receipt Date: 20051114
  Transmission Date: 20060501
  Serious: Yes (Life-Threatening, Hospitalization, Disabling)
  Sender: FDA-Public Use
  Company Number: None

PATIENT
  Sex: Female
  Weight: 55.7924 kg

DRUGS (3)
  1. RAPTIVA [Suspect]
     Indication: PSORIASIS
     Dosage: 125 MG SUBCUTANEOUSLY  ONCE PER WEEK
     Route: 058
     Dates: start: 20040101, end: 20050921
  2. LEXAPRO [Concomitant]
  3. NEURONTIN [Concomitant]

REACTIONS (10)
  - BLASTOMYCOSIS [None]
  - BLOOD ALBUMIN DECREASED [None]
  - BLOOD PRESSURE ABNORMAL [None]
  - DEHYDRATION [None]
  - INFECTION [None]
  - INFLUENZA [None]
  - LUNG INFECTION PSEUDOMONAL [None]
  - PAIN [None]
  - PNEUMONIA FUNGAL [None]
  - RENAL IMPAIRMENT [None]
